FAERS Safety Report 4709809-8 (Version None)
Quarter: 2005Q3

REPORT INFORMATION
  Report Type: 
  Country: None (occurrence: None)
  Receive Date: 20050708
  Receipt Date: 20050510
  Transmission Date: 20060218
  Serious: Yes (Other)
  Sender: FDA-Public Use
  Company Number: PHEH2005US05328

PATIENT
  Age: 71 Year
  Sex: Male

DRUGS (4)
  1. ZELNORM [Suspect]
     Indication: CONSTIPATION
     Dosage: 6 MG, QD
     Route: 048
     Dates: start: 20050301
  2. ZELNORM [Suspect]
     Dosage: 6 MG, PRN
  3. ZETIA [Concomitant]
  4. CLONAZEPAM [Concomitant]

REACTIONS (3)
  - INFECTION [None]
  - PYREXIA [None]
  - THROMBOCYTOPENIA [None]
